FAERS Safety Report 19779940 (Version 2)
Quarter: 2021Q3

REPORT INFORMATION
  Report Type: Report from Study
  Country: US (occurrence: US)
  Receive Date: 20210902
  Receipt Date: 20210906
  Transmission Date: 20211014
  Serious: Yes (Hospitalization)
  Sender: FDA-Public Use
  Company Number: US-TAKEDA-2021TUS053883

PATIENT
  Age: 58 Year
  Sex: Female
  Weight: 95 kg

DRUGS (2)
  1. PROTONIX [Concomitant]
     Active Substance: PANTOPRAZOLE SODIUM
     Indication: GASTROOESOPHAGEAL REFLUX DISEASE
     Dosage: UNK
     Route: 065
  2. VORTIOXETINE. [Suspect]
     Active Substance: VORTIOXETINE
     Indication: DEPRESSION
     Dosage: UNK
     Route: 048

REACTIONS (8)
  - Hypercapnia [Unknown]
  - Pyromania [Unknown]
  - Night sweats [Unknown]
  - Dyspnoea [Unknown]
  - Therapy interrupted [Unknown]
  - Abnormal sleep-related event [Unknown]
  - Nightmare [Unknown]
  - Sleep terror [Unknown]

NARRATIVE: CASE EVENT DATE: 20210822
